FAERS Safety Report 18397650 (Version 1)
Quarter: 2020Q4

REPORT INFORMATION
  Report Type: Spontaneous
  Country: US (occurrence: US)
  Receive Date: 20201018
  Receipt Date: 20201018
  Transmission Date: 20210114
  Serious: Yes (Hospitalization, Other)
  Sender: FDA-Public Use
  Company Number: None

PATIENT
  Age: 64 Year
  Sex: Female
  Weight: 57.6 kg

DRUGS (12)
  1. METHOTREXATE. [Concomitant]
     Active Substance: METHOTREXATE
  2. LUTEIN [Concomitant]
     Active Substance: LUTEIN
  3. TIROSINT [Concomitant]
     Active Substance: LEVOTHYROXINE SODIUM
  4. MULTI VITAMIN [Concomitant]
     Active Substance: VITAMINS
  5. CALCIUM [Concomitant]
     Active Substance: CALCIUM
  6. ZINC PICOLINATE [Concomitant]
     Active Substance: ZINC PICOLINATE
  7. BUSPIRONE HCL [Suspect]
     Active Substance: BUSPIRONE HYDROCHLORIDE
     Indication: GENERALISED ANXIETY DISORDER
     Dosage: ?          QUANTITY:1 TABLET(S);?
     Route: 048
     Dates: start: 20200825, end: 20200911
  8. ASTAXANTHIN [Concomitant]
     Active Substance: ASTAXANTHIN
  9. FISH OIL [Concomitant]
     Active Substance: FISH OIL
  10. VITAMIN D [Concomitant]
     Active Substance: VITAMIN D NOS
  11. MAGNESIUM GLYCERINATE [Concomitant]
  12. LUMIGAN [Concomitant]
     Active Substance: BIMATOPROST

REACTIONS (6)
  - Pruritus [None]
  - Gait inability [None]
  - Rash pruritic [None]
  - Dysstasia [None]
  - Withdrawal syndrome [None]
  - Dizziness postural [None]

NARRATIVE: CASE EVENT DATE: 20200913
